FAERS Safety Report 6346652-0 (Version None)
Quarter: 2009Q3

REPORT INFORMATION
  Report Type: 
  Country: None (occurrence: None)
  Receive Date: 20090903
  Receipt Date: 20090818
  Transmission Date: 20100115
  Serious: Yes (Death)
  Sender: FDA-Public Use
  Company Number: B0590587A

PATIENT
  Sex: 0

DRUGS (20)
  1. EPIVIR [Suspect]
     Indication: ANTIRETROVIRAL THERAPY
  2. DIDANOSINE [Suspect]
     Indication: DRUG USE FOR UNKNOWN INDICATION
  3. NEVIRAPINE [Suspect]
     Indication: ANTIRETROVIRAL THERAPY
  4. STAVUDINE [Suspect]
     Indication: DRUG USE FOR UNKNOWN INDICATION
  5. LACT.ACID-PRODUCING ORGS (FORMULATION UNKNOWN) (LACT.ACID-PRODUCING OR [Suspect]
     Indication: DRUG USE FOR UNKNOWN INDICATION
  6. BETA CAROTENE TABLET (BETA CAROTENE) [Suspect]
     Indication: DRUG USE FOR UNKNOWN INDICATION
  7. CHROMIUM SALT (FORMULATION UNKNOWN) (CHROMIUM SALT) [Suspect]
     Indication: DRUG USE FOR UNKNOWN INDICATION
  8. GINKGO BILOBA (FORMULATION UNKNOWN) (GINKGO BILOBA) [Suspect]
     Indication: DRUG USE FOR UNKNOWN INDICATION
  9. GLYCERIN (FORMULATION UNKNOWN) (GLYCERIN) [Suspect]
  10. LECITHIN (FORMULATION UNKNOWN) (LECITHIN) [Suspect]
  11. MAGNESIUM SALT (FORMULATION UNKNOWN) (MAGNESIUM SALT) [Suspect]
  12. NICOTINIC ACID [Suspect]
  13. SELENIUM (FORMULATION UNKNOWN) (SELENIUM) [Suspect]
  14. SENNOSIDES (FORMULATION UNKNOWN) (SENNOSIDES) [Suspect]
  15. RETINOL [Suspect]
  16. CYANOCOBALAMIN [Suspect]
  17. VITAMIN B (FORMULATION UNKNOWN) (VITAMIN B) [Suspect]
  18. ASCORBIC ACID [Suspect]
  19. VITAMIN E [Suspect]
  20. FOLIC ACID [Suspect]

REACTIONS (7)
  - ACUTE HEPATIC FAILURE [None]
  - ASCITES [None]
  - DRUG INTERACTION [None]
  - DYSPEPSIA [None]
  - HEPATITIS [None]
  - JAUNDICE [None]
  - VOMITING [None]
